FAERS Safety Report 5696316-1 (Version None)
Quarter: 2008Q2

REPORT INFORMATION
  Report Type: 
  Country: None (occurrence: None)
  Receive Date: 20080407
  Receipt Date: 20080326
  Transmission Date: 20081010
  Serious: Yes (Hospitalization, Other)
  Sender: FDA-Public Use
  Company Number: US-PFIZER INC-2008008845

PATIENT
  Sex: Female
  Weight: 63.5 kg

DRUGS (4)
  1. CHANTIX [Suspect]
     Indication: SMOKING CESSATION THERAPY
     Dates: start: 20070901, end: 20080101
  2. LEXAPRO [Concomitant]
  3. LEVOTHYROXINE SODIUM [Concomitant]
  4. XANAX [Concomitant]

REACTIONS (7)
  - ABDOMINAL PAIN [None]
  - FLATULENCE [None]
  - HAEMORRHOIDS [None]
  - PAIN [None]
  - PELVIC PAIN [None]
  - STRESS [None]
  - WRONG TECHNIQUE IN DRUG USAGE PROCESS [None]
